FAERS Safety Report 6135805-2 (Version None)
Quarter: 2009Q1

REPORT INFORMATION
  Report Type: 
  Country: None (occurrence: None)
  Receive Date: 20090327
  Receipt Date: 20090326
  Transmission Date: 20090719
  Serious: Yes (Life-Threatening, Hospitalization)
  Sender: FDA-Public Use
  Company Number: JP-B.I. PHARMACEUTICALS,INC./RIDGEFIELD-2008-BP-04686NB

PATIENT
  Sex: Male
  Weight: 68 kg

DRUGS (7)
  1. AGGRENOX [Suspect]
     Indication: CEREBROVASCULAR ACCIDENT PROPHYLAXIS
     Route: 048
     Dates: start: 20071006, end: 20080325
  2. PRORANON [Concomitant]
     Indication: GLAUCOMA
     Route: 031
     Dates: start: 20061001, end: 20080407
  3. XALATAN [Concomitant]
     Indication: GLAUCOMA
     Route: 031
     Dates: start: 20061001
  4. URSO 250 [Concomitant]
     Indication: POST CHOLECYSTECTOMY SYNDROME
     Dosage: 100MG
     Route: 048
     Dates: start: 20020101
  5. BIOFERMIN [Concomitant]
     Indication: INTESTINAL FUNCTIONAL DISORDER
     Dosage: 3G
     Route: 048
     Dates: start: 20080125, end: 20080324
  6. HALCION [Concomitant]
     Indication: INSOMNIA
     Dosage: .25MG
     Route: 048
     Dates: start: 20070701
  7. PARIET [Concomitant]
     Indication: PROPHYLAXIS
     Dosage: 10MG
     Route: 048
     Dates: start: 20070825

REACTIONS (1)
  - CEREBRAL HAEMORRHAGE [None]
